FAERS Safety Report 8349735-9 (Version None)
Quarter: 2012Q2

REPORT INFORMATION
  Report Type: 
  Country: None (occurrence: None)
  Receive Date: 20120510
  Receipt Date: 20120507
  Transmission Date: 20120825
  Serious: Yes (Death)
  Sender: FDA-Public Use
  Company Number: US-CELGENEUS-163-21880-11030928

PATIENT
  Sex: Female

DRUGS (25)
  1. REVLIMID [Suspect]
     Dosage: 2.5 MILLIGRAM
     Route: 048
     Dates: start: 20110209, end: 20110411
  2. DECADRON [Concomitant]
     Dosage: 20 MILLIGRAM
     Route: 065
     Dates: start: 20101029
  3. AVAPRO [Concomitant]
     Dosage: 150 MILLIGRAM
     Route: 065
  4. LASIX [Concomitant]
     Dosage: 40MG ALT 20MG
     Route: 065
  5. ARANESP [Concomitant]
     Dosage: 100 MICROGRAM
     Route: 058
     Dates: start: 20101029
  6. LASIX [Concomitant]
     Dosage: 20 MILLIGRAM
     Route: 065
  7. ARANESP [Concomitant]
     Dosage: 60MCG ALT 100MCG
     Route: 058
     Dates: start: 20100714
  8. LOVENOX [Concomitant]
     Dosage: 40 MILLIGRAM
     Route: 058
     Dates: start: 20101029
  9. METOPROLOL TARTRATE [Concomitant]
     Dosage: 25 MILLIGRAM
     Route: 065
  10. LIPITOR [Concomitant]
     Dosage: 10 MILLIGRAM
     Route: 065
  11. METOLAZONE [Concomitant]
     Route: 065
     Dates: start: 20100609
  12. RENVELA [Concomitant]
     Dosage: 800 MILLIGRAM
     Route: 065
  13. ARANESP [Concomitant]
     Dosage: 200MCG ALT 150MCG
     Route: 058
  14. VITAMIN D [Concomitant]
     Dosage: 50,000
     Route: 065
  15. DIGOXIN [Concomitant]
     Dosage: .125 MILLIGRAM
     Route: 065
  16. LASIX [Concomitant]
     Dosage: 20MG ALT 40MG
     Route: 065
     Dates: start: 20100609
  17. LEVOXYL [Concomitant]
     Dosage: 50 MICROGRAM
     Route: 065
  18. COLACE [Concomitant]
     Dosage: 200 MILLIGRAM
     Route: 065
  19. LASIX [Concomitant]
     Dosage: 40 MILLIGRAM
     Route: 065
     Dates: start: 20100714
  20. ALDACTONE [Concomitant]
     Dosage: 25 MILLIGRAM
     Route: 065
  21. ASPIRIN [Concomitant]
     Dosage: 81 MILLIGRAM
     Route: 065
  22. NEPRO [Concomitant]
     Route: 065
  23. METOLAZONE [Concomitant]
     Route: 065
  24. RENA [Concomitant]
     Dosage: 5.5 MILLIGRAM
     Route: 065
  25. ALDACTONE [Concomitant]
     Dosage: 25 MILLIGRAM
     Route: 065
     Dates: start: 20100609

REACTIONS (4)
  - CARDIOVASCULAR DISORDER [None]
  - DIARRHOEA [None]
  - NEUTROPHIL COUNT DECREASED [None]
  - RASH PRURITIC [None]
